FAERS Safety Report 6429530-8 (Version None)
Quarter: 2009Q4

REPORT INFORMATION
  Report Type: 
  Country: None (occurrence: None)
  Receive Date: 20091022
  Receipt Date: 20091008
  Transmission Date: 20100525
  Serious: Yes (Other)
  Sender: FDA-Public Use
  Company Number: 20090924CINRY1154

PATIENT
  Age: 48 Year
  Sex: Male

DRUGS (2)
  1. CINRYZE [Suspect]
     Indication: HEREDITARY ANGIOEDEMA
     Dosage: (1000 UNIT,1 IN 1 WK),INTRAVENOUS
     Route: 042
     Dates: start: 20080901
  2. CINRYZE [Suspect]
     Indication: PROPHYLAXIS
     Dosage: (1000 UNIT,1 IN 1 WK),INTRAVENOUS
     Route: 042
     Dates: start: 20080901

REACTIONS (5)
  - ANXIETY [None]
  - DEPRESSED LEVEL OF CONSCIOUSNESS [None]
  - HYPERVENTILATION [None]
  - OEDEMA PERIPHERAL [None]
  - SWOLLEN TONGUE [None]
